FAERS Safety Report 9186815 (Version 2)
Quarter: 2013Q2

REPORT INFORMATION
  Report Type: Spontaneous
  Country: US (occurrence: US)
  Receive Date: 20130325
  Receipt Date: 20130529
  Transmission Date: 20140414
  Serious: No
  Sender: FDA-Public Use
  Company Number: US-PFIZER INC-2013093181

PATIENT
  Age: 52 Year
  Sex: Female

DRUGS (2)
  1. CHANTIX [Suspect]
     Indication: SMOKING CESSATION THERAPY
     Dosage: UNK,
     Dates: start: 20081231, end: 20090127
  2. CHANTIX [Suspect]
     Dosage: 1 MG, 2X/DAY
     Dates: start: 20091231, end: 20100127

REACTIONS (3)
  - Self-injurious ideation [Unknown]
  - Depression [Unknown]
  - Anxiety [Unknown]
